FAERS Safety Report 10395258 (Version 2)
Quarter: 2014Q3

REPORT INFORMATION
  Report Type: Report from Study
  Country: GR (occurrence: GR)
  Receive Date: 20140820
  Receipt Date: 20140825
  Transmission Date: 20150326
  Serious: Yes (Death, Hospitalization)
  Sender: FDA-Public Use
  Company Number: PHHY2014GR100798

PATIENT
  Age: 68 Year
  Sex: Male

DRUGS (1)
  1. SANDOSTATIN LAR DEPOT [Suspect]
     Active Substance: OCTREOTIDE ACETATE
     Indication: ACROMEGALY
     Dates: start: 20140623

REACTIONS (5)
  - Renal failure [Unknown]
  - Cholangitis [Unknown]
  - Cardiac failure [Unknown]
  - Infection [Unknown]
  - Cholecystitis [Fatal]
